FAERS Safety Report 21682964 (Version 1)
Quarter: 2022Q4

REPORT INFORMATION
  Report Type: Spontaneous
  Country: US (occurrence: US)
  Receive Date: 20221205
  Receipt Date: 20221205
  Transmission Date: 20230112
  Serious: Yes (Other)
  Sender: FDA-Public Use
  Company Number: US-GLAXOSMITHKLINE-US2022GSK178174

PATIENT

DRUGS (4)
  1. ACYCLOVIR [Suspect]
     Active Substance: ACYCLOVIR
     Indication: Genital herpes simplex
     Dosage: UNK
  2. VALACYCLOVIR HYDROCHLORIDE [Suspect]
     Active Substance: VALACYCLOVIR HYDROCHLORIDE
     Indication: Genital herpes simplex
     Dosage: UNK
  3. FAMCICLOVIR [Suspect]
     Active Substance: FAMCICLOVIR
     Indication: Genital herpes simplex
     Dosage: UNK
  4. FOSCARNET [Concomitant]
     Active Substance: FOSCARNET
     Indication: Product used for unknown indication
     Dosage: UNK

REACTIONS (2)
  - Pathogen resistance [Unknown]
  - Drug ineffective [Unknown]
